FAERS Safety Report 19258222 (Version 1)
Quarter: 2021Q2

REPORT INFORMATION
  Report Type: Report from Study
  Country: US (occurrence: US)
  Receive Date: 20210514
  Receipt Date: 20210514
  Transmission Date: 20210717
  Serious: Yes (Other)
  Sender: FDA-Public Use
  Company Number: US-SAOL THERAPEUTICS-2021SAO00170

PATIENT
  Age: 58 Year
  Sex: Male
  Weight: 92.97 kg

DRUGS (2)
  1. LIORESAL [Suspect]
     Active Substance: BACLOFEN
     Indication: MUSCLE SPASTICITY
     Dosage: 1034 ?G, \DAY
     Route: 037
     Dates: end: 2019
  2. LIORESAL [Suspect]
     Active Substance: BACLOFEN
     Indication: MULTIPLE SCLEROSIS
     Dosage: UNK; MINIMUM RATE
     Route: 037
     Dates: start: 2019, end: 20211031

REACTIONS (5)
  - Confusional state [Recovered/Resolved]
  - Device physical property issue [Recovered/Resolved]
  - Drug withdrawal syndrome [Recovered/Resolved]
  - Delirium [Recovered/Resolved]
  - Spinal operation [Recovered/Resolved]

NARRATIVE: CASE EVENT DATE: 2019
